FAERS Safety Report 5903649-X (Version None)
Quarter: 2008Q3

REPORT INFORMATION
  Report Type: 
  Country: None (occurrence: None)
  Receive Date: 20080930
  Receipt Date: 20080916
  Transmission Date: 20090109
  Serious: Yes (Other)
  Sender: FDA-Public Use
  Company Number: US-ELI_LILLY_AND_COMPANY-US200809003623

PATIENT
  Sex: Female
  Weight: 99.773 kg

DRUGS (25)
  1. BYETTA [Suspect]
     Indication: TYPE 2 DIABETES MELLITUS
     Dosage: 5 UG, 2/D
     Route: 058
     Dates: start: 20050101
  2. BYETTA [Suspect]
     Dosage: 10 UG, 2/D
     Route: 058
  3. AVANDIA [Concomitant]
     Indication: TYPE 2 DIABETES MELLITUS
     Dosage: UNK, UNKNOWN
  4. METFORMIN HCL [Concomitant]
     Indication: TYPE 2 DIABETES MELLITUS
     Dosage: UNK, UNKNOWN
  5. ACTONEL [Concomitant]
     Indication: OSTEOPOROSIS
     Dosage: UNK, UNKNOWN
  6. ALDACTONE [Concomitant]
     Indication: ADRENAL DISORDER
     Dosage: UNK, UNKNOWN
  7. HYDROCORTISONE [Concomitant]
     Indication: ADRENAL DISORDER
     Dosage: UNK, UNKNOWN
  8. CELEBREX [Concomitant]
     Dosage: UNK, UNKNOWN
  9. DIOVAN [Concomitant]
     Dosage: UNK, UNKNOWN
  10. GABAPENTIN [Concomitant]
     Dosage: UNK, UNKNOWN
  11. HYDROCHLOROTHIAZIDE [Concomitant]
     Dosage: UNK, UNKNOWN
  12. LIPITOR [Concomitant]
     Dosage: UNK, UNKNOWN
  13. METOPROLOL TARTRATE [Concomitant]
     Dosage: UNK, UNKNOWN
  14. OMEPRAZOLE [Concomitant]
     Dosage: UNK, UNKNOWN
  15. TYLENOL W/ CODEINE NO. 3 [Concomitant]
     Dosage: UNK, UNKNOWN
  16. NASONEX [Concomitant]
     Dosage: UNK, UNKNOWN
  17. VITAMIN B-12 [Concomitant]
     Dosage: UNK, UNKNOWN
  18. VITAMIN B6 [Concomitant]
     Dosage: UNK, UNKNOWN
  19. ASCORBIC ACID [Concomitant]
     Dosage: UNK, UNKNOWN
  20. VITAMIN D [Concomitant]
     Dosage: UNK, UNKNOWN
  21. VITAMIN E /001105/ [Concomitant]
     Dosage: UNK, UNKNOWN
  22. CALCIUM [Concomitant]
     Dosage: UNK, UNKNOWN
  23. MAGNESIUM SULFATE [Concomitant]
     Dosage: UNK, UNKNOWN
  24. FERRO-SEQUELS [Concomitant]
     Dosage: UNK, UNKNOWN
  25. MULTI-VITAMIN [Concomitant]
     Dosage: UNK, UNKNOWN

REACTIONS (9)
  - ARTHRITIS [None]
  - BACK PAIN [None]
  - DECREASED APPETITE [None]
  - FALL [None]
  - INCORRECT DOSE ADMINISTERED [None]
  - INJECTION SITE HAEMORRHAGE [None]
  - JOINT SWELLING [None]
  - KNEE ARTHROPLASTY [None]
  - WEIGHT FLUCTUATION [None]
